FAERS Safety Report 5220441-2 (Version None)
Quarter: 2007Q1

REPORT INFORMATION
  Report Type: 
  Country: None (occurrence: None)
  Receive Date: 20061201
  Receipt Date: 20060710
  Transmission Date: 20070707
  Serious: No
  Sender: FDA-Public Use
  Company Number: 2006PV017306

PATIENT
  Age: 64 Year
  Sex: Male
  Weight: 106.1417 kg

DRUGS (4)
  1. BYETTA [Suspect]
     Indication: DIABETES MELLITUS NON-INSULIN-DEPENDENT
     Dosage: 5 MCG;BID;SC
     Route: 058
     Dates: start: 20060627, end: 20060710
  2. NOVOLOG [Concomitant]
  3. GLUCOTROL [Concomitant]
  4. NPH [Concomitant]

REACTIONS (8)
  - BLOOD GLUCOSE DECREASED [None]
  - DIARRHOEA [None]
  - DIZZINESS [None]
  - DYSGEUSIA [None]
  - DYSPEPSIA [None]
  - HYPOAESTHESIA ORAL [None]
  - NAUSEA [None]
  - VISION BLURRED [None]
